FAERS Safety Report 22320612 (Version 1)
Quarter: 2023Q2

REPORT INFORMATION
  Report Type: Spontaneous
  Country: SE (occurrence: SE)
  Receive Date: 20230515
  Receipt Date: 20230515
  Transmission Date: 20230721
  Serious: Yes (Death, Other)
  Sender: FDA-Public Use
  Company Number: SE-BRISTOL-MYERS SQUIBB COMPANY-15288129

PATIENT
  Age: 30 Year
  Sex: Male

DRUGS (10)
  1. ACETAMINOPHEN [Interacting]
     Active Substance: ACETAMINOPHEN
     Dosage: UNK
     Route: 065
  2. ALPRAZOLAM [Interacting]
     Active Substance: ALPRAZOLAM
     Dosage: UNK
     Route: 065
  3. MORPHINE SULFATE [Interacting]
     Active Substance: MORPHINE SULFATE
     Dosage: UNK
     Route: 065
  4. CODEINE PHOSPHATE [Interacting]
     Active Substance: CODEINE PHOSPHATE
     Dosage: UNK
     Route: 065
  5. ZOLPIDEM TARTRATE [Interacting]
     Active Substance: ZOLPIDEM TARTRATE
     Dosage: UNK
     Route: 048
  6. SERTRALINE [Interacting]
     Active Substance: SERTRALINE HYDROCHLORIDE
     Dosage: UNK
     Route: 065
  7. CARISOPRODOL [Interacting]
     Active Substance: CARISOPRODOL
     Dosage: UNK
     Route: 065
  8. XYREM [Interacting]
     Active Substance: SODIUM OXYBATE
     Indication: Substance abuse
     Dosage: UNK
     Route: 048
  9. NANDROLONE [Interacting]
     Active Substance: NANDROLONE
     Dosage: UNK
     Route: 065
  10. AMPHETAMINE SULFATE [Interacting]
     Active Substance: AMPHETAMINE SULFATE
     Dosage: UNK
     Route: 065

REACTIONS (3)
  - Toxicity to various agents [Fatal]
  - Overdose [Fatal]
  - Drug interaction [Fatal]
